FAERS Safety Report 8912203 (Version 3)
Quarter: 2014Q2

REPORT INFORMATION
  Report Type: Spontaneous
  Country: US (occurrence: US)
  Receive Date: 20121115
  Receipt Date: 20140509
  Transmission Date: 20141212
  Serious: Yes (Hospitalization, Other)
  Sender: FDA-Public Use
  Company Number: US-009507513-1012USA02521

PATIENT
  Sex: Female
  Weight: 52.16 kg

DRUGS (7)
  1. FOSAMAX [Suspect]
     Dosage: 5 MG, UNK
     Route: 048
     Dates: start: 19991102, end: 200605
  2. FOSAMAX [Suspect]
     Dosage: 70 MG, QW
     Route: 048
     Dates: start: 20020725, end: 20060517
  3. FOSAMAX D [Suspect]
     Indication: OSTEOPENIA
     Dosage: 70/2800
     Route: 048
     Dates: start: 20060609, end: 20100707
  4. ALENDRONATE SODIUM [Suspect]
     Indication: OSTEOPENIA
     Dosage: 70 MG, QW
     Route: 048
     Dates: start: 20091029, end: 201004
  5. CALCIUM (UNSPECIFIED) [Concomitant]
     Dosage: 1200 MG, QD
     Route: 048
     Dates: start: 1987
  6. VITAMIN D (UNSPECIFIED) [Concomitant]
     Dates: start: 1987
  7. KEFLEX [Concomitant]
     Dosage: 500 MG, UNK
     Dates: start: 20100119

REACTIONS (70)
  - Intramedullary rod insertion [Unknown]
  - Intramedullary rod insertion [Unknown]
  - Rotator cuff syndrome [Unknown]
  - Rotator cuff syndrome [Unknown]
  - Rotator cuff syndrome [Unknown]
  - Device failure [Unknown]
  - Blood potassium decreased [Unknown]
  - Laceration [Unknown]
  - Multiple sclerosis [Unknown]
  - Adverse event [Unknown]
  - Coccydynia [Not Recovered/Not Resolved]
  - Fall [Unknown]
  - Femur fracture [Unknown]
  - Femur fracture [Unknown]
  - Fall [Unknown]
  - Hypertension [Not Recovered/Not Resolved]
  - Rotator cuff syndrome [Not Recovered/Not Resolved]
  - Myofascial pain syndrome [Unknown]
  - Fibrocystic breast disease [Unknown]
  - Low turnover osteopathy [Unknown]
  - Hypercholesterolaemia [Not Recovered/Not Resolved]
  - Spinal osteoarthritis [Not Recovered/Not Resolved]
  - Bursitis [Unknown]
  - Arthritis [Unknown]
  - Stress [Unknown]
  - Intervertebral disc degeneration [Not Recovered/Not Resolved]
  - Intervertebral disc protrusion [Unknown]
  - Muscle strain [Not Recovered/Not Resolved]
  - Muscle strain [Unknown]
  - Hyperlipidaemia [Unknown]
  - Transient ischaemic attack [Unknown]
  - Bursitis [Unknown]
  - Meralgia paraesthetica [Unknown]
  - Atrial fibrillation [Unknown]
  - Fatigue [Unknown]
  - Cervical dysplasia [Unknown]
  - Smear cervix abnormal [Unknown]
  - Vulvovaginal dryness [Unknown]
  - Uterine prolapse [Unknown]
  - Dysfunctional uterine bleeding [Unknown]
  - Vulva cyst [Unknown]
  - Depression [Unknown]
  - Fibromyalgia [Unknown]
  - Atrophy [Unknown]
  - Exostosis [Unknown]
  - Hypokalaemia [Unknown]
  - Hypomagnesaemia [Unknown]
  - Tooth disorder [Unknown]
  - Medical device removal [Unknown]
  - Tooth deposit [Unknown]
  - Tooth deposit [Unknown]
  - Intervertebral disc degeneration [Unknown]
  - Medical device pain [Unknown]
  - Bursitis [Unknown]
  - Mitral valve incompetence [Unknown]
  - Tricuspid valve incompetence [Unknown]
  - Syncope [Unknown]
  - Confusional state [Unknown]
  - Headache [Unknown]
  - Pain in extremity [Not Recovered/Not Resolved]
  - Musculoskeletal pain [Not Recovered/Not Resolved]
  - Headache [Unknown]
  - Muscle spasms [Unknown]
  - Back pain [Unknown]
  - Muscle spasms [Unknown]
  - Arthralgia [Unknown]
  - Pain in extremity [Unknown]
  - Gastrooesophageal reflux disease [Not Recovered/Not Resolved]
  - Arthralgia [Unknown]
  - Pain in extremity [Unknown]
